FAERS Safety Report 23657657 (Version 1)
Quarter: 2024Q1

REPORT INFORMATION
  Report Type: Report from Study
  Country: US (occurrence: US)
  Receive Date: 20240321
  Receipt Date: 20240321
  Transmission Date: 20240410
  Serious: Yes (Other)
  Sender: FDA-Public Use
  Company Number: US-002147023-NVSC2024US055934

PATIENT

DRUGS (2)
  1. TAFINLAR [Suspect]
     Active Substance: DABRAFENIB MESYLATE
     Indication: Metastatic malignant melanoma
     Dosage: UNK
     Route: 065
  2. MEKINIST [Suspect]
     Active Substance: TRAMETINIB DIMETHYL SULFOXIDE
     Indication: Metastatic malignant melanoma
     Dosage: UNK
     Route: 065

REACTIONS (15)
  - Uveitis [Unknown]
  - Nephritis [Unknown]
  - Immune-mediated hepatitis [Unknown]
  - Encephalitis [Unknown]
  - Myocarditis [Unknown]
  - Immune-mediated enterocolitis [Unknown]
  - Immune-mediated lung disease [Unknown]
  - Solid organ transplant rejection [Unknown]
  - Pyrexia [Unknown]
  - Fatigue [Unknown]
  - Diarrhoea [Unknown]
  - Bone pain [Unknown]
  - Chills [Unknown]
  - Endocrine disorder [Unknown]
  - Myalgia [Unknown]
